FAERS Safety Report 7250135-3 (Version None)
Quarter: 2011Q1

REPORT INFORMATION
  Report Type: 
  Country: None (occurrence: None)
  Receive Date: 20110128
  Receipt Date: 20110104
  Transmission Date: 20110831
  Serious: Yes (Disabling)
  Sender: FDA-Public Use
  Company Number: US-BAYER-2010-008955

PATIENT
  Age: 21 Year
  Sex: Male

DRUGS (4)
  1. AMBIEN [Concomitant]
  2. AVELOX [Suspect]
     Indication: SINUSITIS
     Dosage: 400 MG, QD
     Route: 048
     Dates: start: 20101011, end: 20101021
  3. NASONEX [Concomitant]
  4. MUCINEX [Concomitant]

REACTIONS (1)
  - HEADACHE [None]
